FAERS Safety Report 18109650 (Version 3)
Quarter: 2021Q2

REPORT INFORMATION
  Report Type: Spontaneous
  Country: None (occurrence: US)
  Receive Date: 20200804
  Receipt Date: 20210628
  Transmission Date: 20210717
  Serious: Yes (Death, Other)
  Sender: FDA-Public Use
  Company Number: US-GLAXOSMITHKLINE-US2020150251

PATIENT
  Sex: Male

DRUGS (15)
  1. ZANTAC [Suspect]
     Active Substance: RANITIDINE HYDROCHLORIDE
     Dosage: UNK
  2. RANITIDINE. [Suspect]
     Active Substance: RANITIDINE
     Indication: DYSPEPSIA
     Dosage: OCCASIONAL|75 MG|PRESCRIPTION
     Route: 065
     Dates: start: 199201, end: 201406
  3. ZANTAC [Suspect]
     Active Substance: RANITIDINE HYDROCHLORIDE
     Dosage: UNK
  4. ZANTAC [Suspect]
     Active Substance: RANITIDINE HYDROCHLORIDE
     Dosage: 150 MG PRESCRIPTION
     Route: 065
     Dates: start: 199201, end: 201406
  5. ZANTAC [Suspect]
     Active Substance: RANITIDINE HYDROCHLORIDE
     Dosage: 300 MG, QD
     Route: 065
     Dates: start: 199201, end: 201406
  6. ZANTAC [Suspect]
     Active Substance: RANITIDINE HYDROCHLORIDE
     Dates: start: 19920115, end: 20140615
  7. ZANTAC [Suspect]
     Active Substance: RANITIDINE HYDROCHLORIDE
     Indication: DYSPEPSIA
     Dosage: 75 MG PRESCRIPTION
     Route: 065
     Dates: start: 199201, end: 201406
  8. ZANTAC [Suspect]
     Active Substance: RANITIDINE HYDROCHLORIDE
     Dosage: 150 MG PRESCRIPTION
     Route: 065
     Dates: start: 199201, end: 201406
  9. RANITIDINE. [Suspect]
     Active Substance: RANITIDINE
     Dosage: OCCASIONAL|150 MG|PRESCRIPTION
     Route: 065
     Dates: start: 199201, end: 201406
  10. RANITIDINE. [Suspect]
     Active Substance: RANITIDINE
     Dosage: 300 MG
     Route: 065
     Dates: start: 199201, end: 201406
  11. ZANTAC [Suspect]
     Active Substance: RANITIDINE HYDROCHLORIDE
     Indication: DYSPEPSIA
     Dosage: 75 MG PRESCRIPTION
     Route: 065
     Dates: start: 199201, end: 201406
  12. ZANTAC [Suspect]
     Active Substance: RANITIDINE HYDROCHLORIDE
     Dosage: 300 MG, QD
     Route: 065
     Dates: start: 199201, end: 201406
  13. RANITIDINE. [Suspect]
     Active Substance: RANITIDINE
     Indication: DYSPEPSIA
     Dosage: OCCASIONAL|75 MG|PRESCRIPTION
     Route: 065
     Dates: start: 199201, end: 201406
  14. RANITIDINE. [Suspect]
     Active Substance: RANITIDINE
     Dosage: OCCASIONAL|150 MG|PRESCRIPTION
     Route: 065
     Dates: start: 199201, end: 201406
  15. RANITIDINE. [Suspect]
     Active Substance: RANITIDINE
     Dosage: 300 MG
     Route: 065
     Dates: start: 199201, end: 201406

REACTIONS (1)
  - Bladder cancer [Fatal]
